FAERS Safety Report 7945117-X (Version None)
Quarter: 2011Q4

REPORT INFORMATION
  Report Type: 
  Country: None (occurrence: None)
  Receive Date: 20111129
  Receipt Date: 20111129
  Transmission Date: 20120403
  Serious: Yes (Other)
  Sender: FDA-Public Use
  Company Number: None

PATIENT
  Age: 52 Year
  Sex: Female
  Weight: 97.522 kg

DRUGS (14)
  1. DESVENLAFAXINE [Concomitant]
  2. FERROUS FUMARATE [Concomitant]
  3. GABAPENTIN [Concomitant]
  4. ZOLPIDEM [Concomitant]
  5. LEVAQUIN [Suspect]
     Indication: SINUSITIS
     Dosage: LEVAQUIN 500MG
     Route: 048
     Dates: start: 20110908, end: 20110911
  6. TIZANIDINE HCL [Concomitant]
  7. VIT D3 [Concomitant]
  8. FEXOFENADINE [Concomitant]
  9. OMEPRAZOLE [Concomitant]
  10. LORAZEPAM [Concomitant]
  11. AMITRIPTYLINE HYDROCHLORIDE [Concomitant]
  12. GABAPENTIN [Concomitant]
  13. HYDROCHLOROTHIAZIDE [Concomitant]
  14. TRAMADOL HCL [Concomitant]

REACTIONS (2)
  - MYALGIA [None]
  - MUSCULAR WEAKNESS [None]
